FAERS Safety Report 25088145 (Version 1)
Quarter: 2025Q1

REPORT INFORMATION
  Report Type: Spontaneous
  Country: FR (occurrence: FR)
  Receive Date: 20250318
  Receipt Date: 20250318
  Transmission Date: 20250409
  Serious: Yes (Hospitalization, Other)
  Sender: AUROBINDO
  Company Number: FR-AFSSAPS-PP2025000204

PATIENT
  Age: 50 Year
  Sex: Male
  Weight: 64 kg

DRUGS (3)
  1. ATORVASTATIN [Suspect]
     Active Substance: ATORVASTATIN
     Indication: Prophylaxis
     Dosage: 80 MILLIGRAM, ONCE A DAY
     Route: 048
     Dates: start: 20241227, end: 20241228
  2. AMIODARONE [Suspect]
     Active Substance: AMIODARONE
     Indication: Prophylaxis
     Dosage: 200 MILLIGRAM, 3 TIMES A DAY
     Route: 048
     Dates: start: 20250128
  3. LOVENOX [Suspect]
     Active Substance: ENOXAPARIN SODIUM
     Indication: Acute coronary syndrome
     Dates: start: 20241227, end: 20250204

REACTIONS (2)
  - Hepatic cytolysis [Recovering/Resolving]
  - Cholestasis [Recovering/Resolving]

NARRATIVE: CASE EVENT DATE: 20250128
